FAERS Safety Report 16279308 (Version 1)
Quarter: 2019Q2

REPORT INFORMATION
  Report Type: Spontaneous
  Country: US (occurrence: US)
  Receive Date: 20190507
  Receipt Date: 20190507
  Transmission Date: 20190711
  Serious: Yes (Other)
  Sender: FDA-Public Use
  Company Number: US-009507513-1905USA001014

PATIENT
  Age: 21 Year
  Sex: Female
  Weight: 48.07 kg

DRUGS (1)
  1. NEXPLANON [Suspect]
     Active Substance: ETONOGESTREL
     Dosage: 1 IMPLANT
     Dates: start: 20160317, end: 20190501

REACTIONS (3)
  - Device dislocation [Recovered/Resolved]
  - Incorrect product administration duration [Unknown]
  - Device deployment issue [Recovered/Resolved]

NARRATIVE: CASE EVENT DATE: 20160317
